FAERS Safety Report 15888458 (Version 1)
Quarter: 2019Q1

REPORT INFORMATION
  Report Type: Spontaneous
  Country: US (occurrence: US)
  Receive Date: 20190130
  Receipt Date: 20190130
  Transmission Date: 20190417
  Serious: Yes (Death, Hospitalization, Other)
  Sender: FDA-Public Use
  Company Number: US-009507513-1810USA006112

PATIENT
  Sex: Female

DRUGS (3)
  1. GEMZAR [Suspect]
     Active Substance: GEMCITABINE HYDROCHLORIDE
     Indication: ADRENOCORTICAL CARCINOMA
     Dosage: ONE CYCLE
  2. KEYTRUDA [Suspect]
     Active Substance: PEMBROLIZUMAB
     Indication: ADRENOCORTICAL CARCINOMA
     Dosage: 200 MILLIGRAM
  3. TAXOTERE [Suspect]
     Active Substance: DOCETAXEL
     Indication: ADRENOCORTICAL CARCINOMA
     Dosage: ONE CYCLE

REACTIONS (5)
  - Epilepsy [Unknown]
  - Adverse event [Unknown]
  - Malignant neoplasm progression [Fatal]
  - Product use in unapproved indication [Unknown]
  - Renal failure [Recovered/Resolved]
